FAERS Safety Report 9678928 (Version 1)
Quarter: 2013Q4

REPORT INFORMATION
  Report Type: Spontaneous
  Country: BR (occurrence: BR)
  Receive Date: 20131108
  Receipt Date: 20131108
  Transmission Date: 20140711
  Serious: Yes (Hospitalization)
  Sender: FDA-Public Use
  Company Number: BR-PFIZER INC-2013317827

PATIENT
  Age: 51 Year
  Sex: Female
  Weight: 81 kg

DRUGS (7)
  1. ATENOLOL [Suspect]
     Indication: HYPERTENSION
     Dosage: UNK
     Route: 048
     Dates: start: 200803
  2. BRILINTA [Suspect]
     Indication: STENT PLACEMENT
     Dosage: 90 MG, 2X/DAY
     Route: 048
     Dates: start: 20130731
  3. PANTOPRAZOLE [Concomitant]
     Indication: PROPHYLAXIS
     Dosage: UNK
  4. JANUVIA [Concomitant]
     Indication: GLUCOSE TOLERANCE IMPAIRED
     Dosage: UNK
     Dates: start: 20130731
  5. FLUOXETINE HYDROCHLORIDE [Concomitant]
     Indication: SEDATION
     Dosage: UNK
  6. AAS [Concomitant]
     Indication: CARDIAC DISORDER
     Dosage: UNK
  7. ATORVASTATIN [Concomitant]
     Indication: BLOOD CHOLESTEROL INCREASED
     Dosage: UNK

REACTIONS (2)
  - Vascular rupture [Recovered/Resolved]
  - Weight decreased [Recovering/Resolving]
